FAERS Safety Report 7590289-2 (Version None)
Quarter: 2011Q3

REPORT INFORMATION
  Report Type: 
  Country: None (occurrence: None)
  Receive Date: 20110705
  Receipt Date: 20110613
  Transmission Date: 20111222
  Serious: Yes (Hospitalization)
  Sender: FDA-Public Use
  Company Number: US-BAYER-201037653NA

PATIENT
  Age: 26 Year
  Sex: Female
  Weight: 126.98 kg

DRUGS (9)
  1. YASMIN [Suspect]
     Indication: PRODUCT USED FOR UNKNOWN INDICATION
     Dosage: UNK
     Dates: start: 20010401, end: 20080401
  2. TIGAN [Concomitant]
     Indication: NAUSEA
     Dosage: UNK
     Dates: start: 20070204
  3. REGLAN [Concomitant]
     Dosage: UNK
     Dates: start: 20070204
  4. DROSPIRENONE AND ETHINYL ESTRADIOL [Suspect]
     Indication: PRODUCT USED FOR UNKNOWN INDICATION
  5. IBUPROFEN [Concomitant]
  6. YAZ [Suspect]
     Indication: PRODUCT USED FOR UNKNOWN INDICATION
  7. LOVENOX [Concomitant]
     Dosage: UNK
     Dates: start: 20070204
  8. AUGMENTIN '125' [Concomitant]
     Indication: INFECTION
     Dosage: UNK
     Dates: start: 20070204
  9. VITAMIN TAB [Concomitant]
     Dosage: UNK UNK, QD

REACTIONS (4)
  - DYSPNOEA [None]
  - ABDOMINAL PAIN UPPER [None]
  - CHEST PAIN [None]
  - CHOLECYSTITIS [None]
